FAERS Safety Report 4869168-7 (Version None)
Quarter: 2005Q4

REPORT INFORMATION
  Report Type: 
  Country: None (occurrence: None)
  Receive Date: 20051227
  Receipt Date: 20051223
  Transmission Date: 20060501
  Serious: Yes (Hospitalization)
  Sender: FDA-Public Use
  Company Number: HQWYE139923DEC05

PATIENT
  Age: 57 Year
  Sex: Female

DRUGS (3)
  1. PREMIQUE (CONJUGATED ESTROGENS/MEDROXYPROGESTERONE ACETATE, TABLET, UN [Suspect]
     Indication: HORMONE REPLACEMENT THERAPY
     Route: 048
     Dates: start: 20030604, end: 20050427
  2. GLUCOSAMINE (GLUCOSAMINE) [Concomitant]
  3. DICLOFENAC (DICLOFENAC) [Concomitant]

REACTIONS (6)
  - ANGINA UNSTABLE [None]
  - CHEST PAIN [None]
  - CORONARY ARTERY STENOSIS [None]
  - FATIGUE [None]
  - LETHARGY [None]
  - MYOCARDIAL ISCHAEMIA [None]
